FAERS Safety Report 15920667 (Version 1)
Quarter: 2019Q1

REPORT INFORMATION
  Report Type: Report from Study
  Country: US (occurrence: US)
  Receive Date: 20190205
  Receipt Date: 20190205
  Transmission Date: 20190417
  Serious: Yes (Death)
  Sender: FDA-Public Use
  Company Number: US-TAIHO ONCOLOGY  INC-EU-2018-02557

PATIENT
  Sex: Male

DRUGS (7)
  1. LONSURF [Suspect]
     Active Substance: TIPIRACIL HYDROCHLORIDE\TRIFLURIDINE
     Indication: NEOPLASM MALIGNANT
     Dosage: CYCLE AND FREQUENCY UNKNOWN.
     Route: 048
     Dates: start: 20180619
  2. LIPITOR [Concomitant]
     Active Substance: ATORVASTATIN CALCIUM
     Dosage: NI
  3. NASONEX [Concomitant]
     Active Substance: MOMETASONE FUROATE
     Dosage: NI
  4. POTASSIUM [Concomitant]
     Active Substance: POTASSIUM
     Dosage: NI
  5. MAGNESIUM [Concomitant]
     Active Substance: MAGNESIUM
     Dosage: NI
  6. PREVACID [Concomitant]
     Active Substance: LANSOPRAZOLE
     Dosage: NI
  7. AMLODIPINE [Concomitant]
     Active Substance: AMLODIPINE BESYLATE
     Dosage: NI

REACTIONS (1)
  - Gastrointestinal haemorrhage [Fatal]
